FAERS Safety Report 9343068 (Version 2)
Quarter: 2013Q2

REPORT INFORMATION
  Report Type: Report from Study
  Country: JP (occurrence: JP)
  Receive Date: 20130611
  Receipt Date: 20130621
  Transmission Date: 20140414
  Serious: Yes (Death, Life-Threatening, Hospitalization)
  Sender: FDA-Public Use
  Company Number: JP-CELGENEUS-087-21660-13060570

PATIENT
  Age: 59 Year
  Sex: Male
  Weight: 60 kg

DRUGS (11)
  1. ABRAXANE [Suspect]
     Indication: GASTRIC CANCER
     Dosage: 167 MILLIGRAM
     Route: 041
     Dates: start: 20130522, end: 20130529
  2. ABRAXANE [Suspect]
     Route: 041
     Dates: start: 2013
  3. MAGLAX [Concomitant]
     Indication: CONSTIPATION
     Route: 048
     Dates: start: 20130510
  4. XYZAL [Concomitant]
     Indication: URTICARIA
     Dosage: 5 MILLIGRAM
     Route: 048
     Dates: start: 20130510
  5. XYZAL [Concomitant]
     Dosage: 10 MILLIGRAM
     Route: 048
     Dates: start: 20130516
  6. TARIVID [Concomitant]
     Indication: DACRYOSTENOSIS ACQUIRED
     Route: 065
     Dates: start: 20130602
  7. SINGULAIR [Concomitant]
     Indication: URTICARIA
     Dosage: 10 MILLIGRAM
     Route: 048
     Dates: start: 20130510
  8. ANTEBATE [Concomitant]
     Indication: URTICARIA
     Route: 065
     Dates: start: 20130510
  9. HIRUDOID [Concomitant]
     Indication: PRODUCT USED FOR UNKNOWN INDICATION
     Route: 065
     Dates: start: 20130510
  10. FLUMETHOLON [Concomitant]
     Indication: DACRYOSTENOSIS ACQUIRED
     Route: 065
     Dates: start: 201206
  11. GATIFLO [Concomitant]
     Indication: DACRYOSTENOSIS ACQUIRED
     Route: 065
     Dates: start: 201206

REACTIONS (2)
  - Septic shock [Fatal]
  - Febrile neutropenia [Not Recovered/Not Resolved]
